FAERS Safety Report 14539050 (Version 1)
Quarter: 2018Q1

REPORT INFORMATION
  Report Type: Spontaneous
  Country: EG (occurrence: EG)
  Receive Date: 20180216
  Receipt Date: 20180216
  Transmission Date: 20180509
  Serious: Yes (Other)
  Sender: FDA-Public Use
  Company Number: EG-SUN PHARMACEUTICAL INDUSTRIES LTD-2018RR-163528

PATIENT
  Age: 16 Year
  Sex: Male

DRUGS (5)
  1. BENZOYL PEROXIDE. [Suspect]
     Active Substance: BENZOYL PEROXIDE
     Indication: ACNE
     Dosage: PRESCRIBED FOR 1 WEEK
     Route: 065
  2. AMOXICILLIN/CLAVULANIC ACID [Suspect]
     Active Substance: AMOXICILLIN\CLAVULANIC ACID
     Indication: ACNE
     Dosage: 1 G, BID
     Route: 065
  3. FUSIDIC ACID CREAM [Suspect]
     Active Substance: FUSIDIC ACID
     Indication: ACNE
     Route: 065
  4. ISOTRETINOIN. [Suspect]
     Active Substance: ISOTRETINOIN
     Indication: ACNE
     Dosage: 0.6 MG/KG, (30 MG/D), DOSE GRADUALLY INCREASED TILL 1.5 MG/KG (80 MG/D)
     Route: 048
  5. PREDNISOLONE. [Suspect]
     Active Substance: PREDNISOLONE
     Indication: ACNE
     Dosage: 0.6 MG/KG, DAILY
     Route: 065

REACTIONS (3)
  - Synovitis [Recovered/Resolved]
  - Sacroiliitis [Recovered/Resolved]
  - Acne [Recovering/Resolving]
